FAERS Safety Report 23977377 (Version 2)
Quarter: 2024Q3

REPORT INFORMATION
  Report Type: Spontaneous
  Country: IL (occurrence: IL)
  Receive Date: 20240614
  Receipt Date: 20240823
  Transmission Date: 20241016
  Serious: Yes (Hospitalization, Other)
  Sender: ELI LILLY AND CO
  Company Number: IL-ELI_LILLY_AND_COMPANY-IL202406005389

PATIENT
  Age: 27 Year
  Sex: Female

DRUGS (3)
  1. ABEMACICLIB [Suspect]
     Active Substance: ABEMACICLIB
     Indication: Product used for unknown indication
     Dosage: 150 MG, BID
     Route: 065
     Dates: start: 20240301, end: 202403
  2. GONADORELIN [Concomitant]
     Active Substance: GONADORELIN
     Indication: Product used for unknown indication
     Dosage: UNK UNK, UNKNOWN
  3. LETROZOLE [Concomitant]
     Active Substance: LETROZOLE
     Indication: Product used for unknown indication
     Dosage: UNK UNK, UNKNOWN

REACTIONS (17)
  - Hypercalcaemia [Unknown]
  - Cardiac disorder [Unknown]
  - Haemolytic anaemia [Unknown]
  - Electrolyte imbalance [Unknown]
  - Hypokalaemia [Unknown]
  - Cellulitis [Unknown]
  - Urinary tract infection [Unknown]
  - Malignant neoplasm progression [Unknown]
  - Neutropenia [Unknown]
  - Hot flush [Unknown]
  - Pyrexia [Unknown]
  - Drug intolerance [Unknown]
  - Tachycardia [Unknown]
  - Arthralgia [Unknown]
  - Pleuritic pain [Unknown]
  - Fatigue [Unknown]
  - Nausea [Unknown]
